FAERS Safety Report 24190791 (Version 1)
Quarter: 2024Q3

REPORT INFORMATION
  Report Type: Spontaneous
  Country: US (occurrence: US)
  Receive Date: 20240808
  Receipt Date: 20240808
  Transmission Date: 20241017
  Serious: No
  Sender: ASSERTIO THERAPEUTICS
  Company Number: US-ASSERTIO THERAPEUTICS, INC.-US-2023AST000469

PATIENT

DRUGS (1)
  1. DICLOFENAC POTASSIUM [Suspect]
     Active Substance: DICLOFENAC POTASSIUM
     Indication: Migraine
     Dosage: UNK
     Route: 048

REACTIONS (2)
  - Inability to afford medication [Unknown]
  - Drug ineffective [Unknown]
